FAERS Safety Report 4379273-X (Version None)
Quarter: 2004Q2

REPORT INFORMATION
  Report Type: 
  Country: None (occurrence: None)
  Receive Date: 20040610
  Receipt Date: 20040525
  Transmission Date: 20050107
  Serious: Yes (Other)
  Sender: FDA-Public Use
  Company Number: 196182

PATIENT
  Age: 60 Year
  Sex: Male

DRUGS (6)
  1. AVONEX [Suspect]
     Indication: MULTIPLE SCLEROSIS
     Dosage: 30 MCG QW IM
     Route: 030
     Dates: start: 20030701
  2. CLONAZEPAM [Concomitant]
  3. ELAVIL [Concomitant]
  4. AMANTADINE HCL [Concomitant]
  5. ASPIRIN [Concomitant]
  6. PRAVACHOL [Concomitant]

REACTIONS (2)
  - BENIGN NEOPLASM [None]
  - PAROTID GLAND ENLARGEMENT [None]
